FAERS Safety Report 8376001-8 (Version None)
Quarter: 2012Q2

REPORT INFORMATION
  Report Type: 
  Country: None (occurrence: None)
  Receive Date: 20120522
  Receipt Date: 20120509
  Transmission Date: 20120825
  Serious: Yes (Hospitalization)
  Sender: FDA-Public Use
  Company Number: PHHY2012FR015523

PATIENT
  Age: 81 Year
  Sex: Female
  Weight: 69 kg

DRUGS (17)
  1. LASIX [Concomitant]
     Dosage: 40 MG, UNK
  2. OSLIF BREEZHALER [Suspect]
     Indication: CHRONIC OBSTRUCTIVE PULMONARY DISEASE
     Dosage: 150 UG, QD
     Route: 002
     Dates: start: 20120113, end: 20120113
  3. ALLOPURINOL [Concomitant]
     Dosage: 200 MG, QD
  4. FUROSEMIDE [Concomitant]
     Indication: HYPERTENSION
  5. OMEPRAZOLE [Concomitant]
  6. ASPIRIN [Concomitant]
     Indication: ARTERIOSCLEROSIS CORONARY ARTERY
     Dosage: 75 MG, QD
  7. METFORMIN HCL [Concomitant]
     Indication: DIABETES MELLITUS
     Dosage: 500 MG, TID
  8. CYMBALTA [Concomitant]
     Indication: POLYNEUROPATHY
  9. VITAMIN D [Concomitant]
  10. SYMBICORT [Suspect]
  11. POTASSIUM CHLORIDE [Concomitant]
  12. STRUCTUM [Concomitant]
     Dosage: 1000 MG, BID
  13. DIURETICS [Concomitant]
  14. TANAKAN [Concomitant]
     Dosage: 40 MG, TID
  15. METFORMIN HYDROCHLORIDE [Concomitant]
  16. AMBROXOL [Concomitant]
  17. SPIRIVA [Concomitant]
     Dosage: 1 DF, QD

REACTIONS (7)
  - CHEST DISCOMFORT [None]
  - CARDIAC FAILURE [None]
  - MALAISE [None]
  - PALLOR [None]
  - FATIGUE [None]
  - DYSPNOEA [None]
  - AORTIC STENOSIS [None]
